FAERS Safety Report 4961609-X (Version None)
Quarter: 2006Q1

REPORT INFORMATION
  Report Type: 
  Country: None (occurrence: None)
  Receive Date: 20060329
  Receipt Date: 20060317
  Transmission Date: 20060701
  Serious: Yes (Death)
  Sender: FDA-Public Use
  Company Number: 028-C5013-06030638

PATIENT
  Age: 72 Year
  Sex: Male

DRUGS (3)
  1. REVLIMID [Suspect]
     Indication: MULTIPLE MYELOMA
     Dosage: 25 MG, UNKNOWN, ORAL
     Route: 048
     Dates: start: 20060205
  2. DEXAMETHASONE [Suspect]
     Indication: MULTIPLE MYELOMA
     Dosage: UNKNOWN
     Route: 065
     Dates: start: 20060205
  3. KEFLEX [Concomitant]

REACTIONS (5)
  - ASTHENIA [None]
  - CHILLS [None]
  - NAUSEA [None]
  - POSTNASAL DRIP [None]
  - RALES [None]
